FAERS Safety Report 5366942-8 (Version None)
Quarter: 2007Q2

REPORT INFORMATION
  Report Type: 
  Country: None (occurrence: None)
  Receive Date: 20070622
  Receipt Date: 20070118
  Transmission Date: 20071010
  Serious: No
  Sender: FDA-Public Use
  Company Number: US-ASTRAZENECA-2007UW00964

PATIENT
  Age: 60 Year
  Sex: Female
  Weight: 72.6 kg

DRUGS (5)
  1. RHINOCORT [Suspect]
     Indication: SINUS DISORDER
     Route: 045
  2. RHINOCORT [Suspect]
     Route: 045
  3. LEVOTHYROXINE SODIUM [Concomitant]
  4. ATENOLOL [Concomitant]
  5. CLARIFTHROMYCIN [Concomitant]

REACTIONS (2)
  - DIZZINESS [None]
  - FEELING HOT [None]
